FAERS Safety Report 5674737-0 (Version None)
Quarter: 2008Q1

REPORT INFORMATION
  Report Type: 
  Country: None (occurrence: None)
  Receive Date: 20080320
  Receipt Date: 20080314
  Transmission Date: 20080703
  Serious: Yes (Hospitalization)
  Sender: FDA-Public Use
  Company Number: GB-ROCHE-553475

PATIENT
  Age: 62 Year
  Sex: Male
  Weight: 114.3 kg

DRUGS (4)
  1. ORLISTAT [Suspect]
     Indication: OBESITY
     Route: 048
     Dates: start: 20070831
  2. DOXAZOSIN [Concomitant]
     Dosage: DATE STARTED LONG TERM
     Route: 048
  3. LOSARTAN POTASSIUM [Concomitant]
     Dosage: DATE STARTED LONG TERM
     Route: 048
  4. LERCANIDIPINE [Concomitant]
     Dosage: DATE STARTED LONG TERM
     Route: 048

REACTIONS (1)
  - HERNIA [None]
